FAERS Safety Report 9878033 (Version 1)
Quarter: 2014Q1

REPORT INFORMATION
  Report Type: Report from Study
  Country: US (occurrence: US)
  Receive Date: 20140206
  Receipt Date: 20140206
  Transmission Date: 20141002
  Serious: Yes (Other)
  Sender: FDA-Public Use
  Company Number: PHEH2014US002579

PATIENT
  Age: 59 Year
  Sex: 0

DRUGS (2)
  1. GILENYA [Suspect]
     Indication: MULTIPLE SCLEROSIS
     Dosage: 1 DF, QD
     Route: 048
     Dates: start: 20130205
  2. GILENYA [Suspect]
     Dosage: 0.5 DF, QD
     Route: 048

REACTIONS (2)
  - Cardiac disorder [Unknown]
  - Prescribed underdose [Unknown]
